FAERS Safety Report 17218154 (Version 1)
Quarter: 2019Q4

REPORT INFORMATION
  Report Type: Spontaneous
  Country: US (occurrence: US)
  Receive Date: 20191207
  Receipt Date: 20191207
  Transmission Date: 20200122
  Serious: No
  Sender: FDA-Public Use
  Company Number: None

PATIENT
  Age: 4 Month
  Sex: Female

DRUGS (1)
  1. TOBRAMYCIN NEB 300MG/5ML [Suspect]
     Active Substance: TOBRAMYCIN
     Dosage: ?          OTHER ROUTE:UNKNOWN?
     Dates: start: 201906

REACTIONS (2)
  - Product administered to patient of inappropriate age [None]
  - Off label use [None]

NARRATIVE: CASE EVENT DATE: 20190626
